FAERS Safety Report 7217810-8 (Version None)
Quarter: 2011Q1

REPORT INFORMATION
  Report Type: 
  Country: None (occurrence: None)
  Receive Date: 20110110
  Receipt Date: 20110107
  Transmission Date: 20110831
  Serious: Yes (Death)
  Sender: FDA-Public Use
  Company Number: PHHY2011IN01267

PATIENT
  Sex: Male

DRUGS (2)
  1. GLEEVEC [Suspect]
     Dosage: 600 MG, UNK
  2. GLEEVEC [Suspect]
     Indication: CHRONIC MYELOID LEUKAEMIA
     Dosage: 400 MG, UNK

REACTIONS (1)
  - DEATH [None]
